FAERS Safety Report 6164933-0 (Version None)
Quarter: 2009Q2

REPORT INFORMATION
  Report Type: 
  Country: None (occurrence: None)
  Receive Date: 20090423
  Receipt Date: 20090415
  Transmission Date: 20091009
  Serious: Yes (Other)
  Sender: FDA-Public Use
  Company Number: US-BAYER-200914531NA

PATIENT
  Age: 39 Year
  Sex: Female
  Weight: 67 kg

DRUGS (3)
  1. YAZ [Suspect]
     Indication: DRUG USE FOR UNKNOWN INDICATION
     Route: 048
  2. VERELAN [Concomitant]
     Indication: HYPERTENSION
     Route: 048
  3. CATAPRES-TTS-2 [Concomitant]
     Indication: HYPERTENSION
     Dates: start: 20090303

REACTIONS (3)
  - BLOOD ALDOSTERONE INCREASED [None]
  - HYPERALDOSTERONISM [None]
  - HYPERTENSION [None]
